FAERS Safety Report 5143597-9 (Version None)
Quarter: 2006Q4

REPORT INFORMATION
  Report Type: 
  Country: None (occurrence: None)
  Receive Date: 20061103
  Receipt Date: 20061026
  Transmission Date: 20070319
  Serious: Yes (Other)
  Sender: FDA-Public Use
  Company Number: US-GLAXOSMITHKLINE-A0625514A

PATIENT
  Sex: Female

DRUGS (1)
  1. AQUAFRESH EXTREME CLEAN ORIGINAL EXPERIENCE + WHITENING TOOTHPASTE [Suspect]
     Indication: DRUG USE FOR UNKNOWN INDICATION
     Route: 048

REACTIONS (5)
  - ACCIDENTAL EXPOSURE [None]
  - APHASIA [None]
  - CHOKING SENSATION [None]
  - DYSPNOEA [None]
  - TRACHEAL PAIN [None]
